FAERS Safety Report 8238173-5 (Version None)
Quarter: 2012Q1

REPORT INFORMATION
  Report Type: 
  Country: None (occurrence: None)
  Receive Date: 20120327
  Receipt Date: 20120313
  Transmission Date: 20120608
  Serious: Yes (Hospitalization)
  Sender: FDA-Public Use
  Company Number: IT-MYLANLABS-2012S1005805

PATIENT
  Age: 49 Year
  Sex: Female

DRUGS (1)
  1. TRANEXAMIC ACID [Suspect]
     Indication: UTERINE HAEMORRHAGE
     Dosage: 500MG DAILY
     Route: 048

REACTIONS (1)
  - ISCHAEMIC STROKE [None]
